FAERS Safety Report 5972872-0 (Version None)
Quarter: 2008Q4

REPORT INFORMATION
  Report Type: 
  Country: None (occurrence: None)
  Receive Date: 20081201
  Receipt Date: 20081120
  Transmission Date: 20090506
  Serious: Yes (Death)
  Sender: FDA-Public Use
  Company Number: JP-BAYER-200812837BYL

PATIENT
  Age: 69 Year
  Sex: Male
  Weight: 70 kg

DRUGS (9)
  1. NEXAVAR [Suspect]
     Indication: RENAL CELL CARCINOMA STAGE IV
     Dosage: AS USED: 800 MG  UNIT DOSE: 200 MG
     Route: 048
     Dates: start: 20080925, end: 20081008
  2. NEXAVAR [Suspect]
     Dosage: AS USED: 400 MG  UNIT DOSE: 200 MG
     Route: 048
     Dates: start: 20081009, end: 20081022
  3. NEXAVAR [Suspect]
     Dosage: AS USED: 800 MG  UNIT DOSE: 200 MG
     Route: 048
     Dates: start: 20081023, end: 20081105
  4. BAYLOTENSIN [Concomitant]
     Indication: HYPERTENSION
     Dosage: TOTAL DAILY DOSE: 10 MG
     Route: 048
     Dates: start: 20080925, end: 20081105
  5. TENORMIN [Concomitant]
     Indication: HYPERTENSION
     Dosage: TOTAL DAILY DOSE: 50 MG
     Route: 048
     Dates: start: 20080925, end: 20081105
  6. OXYCONTIN [Concomitant]
     Indication: PAIN
     Dosage: AS USED: 60 MG  UNIT DOSE: 5 MG
     Route: 048
     Dates: start: 20080925, end: 20081105
  7. MOBIC [Concomitant]
     Indication: PAIN
     Dosage: TOTAL DAILY DOSE: 10 MG
     Route: 048
     Dates: start: 20080925, end: 20081105
  8. HEAVY MAGNESIUM OXIDE [Concomitant]
     Indication: CONSTIPATION
     Dosage: AS USED: 2 G
     Route: 048
     Dates: start: 20080925, end: 20081105
  9. CIMETIPARL [Concomitant]
     Indication: GASTRITIS
     Dosage: AS USED: 400 MG
     Route: 048
     Dates: start: 20080925, end: 20081105

REACTIONS (4)
  - ANOREXIA [None]
  - PALMAR-PLANTAR ERYTHRODYSAESTHESIA SYNDROME [None]
  - PULMONARY INFARCTION [None]
  - RASH [None]
